FAERS Safety Report 12210086 (Version 1)
Quarter: 2016Q1

REPORT INFORMATION
  Report Type: Spontaneous
  Country: CZ (occurrence: CZ)
  Receive Date: 20160325
  Receipt Date: 20160325
  Transmission Date: 20160526
  Serious: Yes (Other)
  Sender: FDA-Public Use
  Company Number: CZ-AMGEN-CZESP2015141587

PATIENT
  Age: 63 Year
  Sex: Male
  Weight: 130 kg

DRUGS (10)
  1. MILURIT [Concomitant]
     Active Substance: ALLOPURINOL
     Dosage: 100 MG, DAILY
  2. GODASAL [Concomitant]
     Active Substance: ASPIRIN\GLYCINE
     Dosage: 100 MG/50 MG, DAILY
  3. CORYOL                             /00984501/ [Concomitant]
     Dosage: 18.75 MG, DAILY
  4. HUMULIN NOS [Concomitant]
     Active Substance: INSULIN HUMAN
     Dosage: 30 IU, DAILY
  5. TRITACE [Concomitant]
     Active Substance: RAMIPRIL
     Dosage: 2.5 MG, DAILY
  6. SORVASTA [Concomitant]
     Dosage: 30 MG, DAILY
  7. PROCORALAN [Suspect]
     Active Substance: IVABRADINE
     Indication: CARDIAC FAILURE CHRONIC
     Dosage: 5 MG, BID
     Route: 048
     Dates: start: 20151016, end: 20151019
  8. OMNIC TOCAS [Concomitant]
     Dosage: 0.4 MG, DAILY
  9. FURORESE                           /00032601/ [Concomitant]
     Dosage: 62.5 MG, DAILY
  10. HUMULIN NOS [Concomitant]
     Active Substance: INSULIN HUMAN
     Dosage: 16 IU, DAILY

REACTIONS (3)
  - Blood creatinine increased [Unknown]
  - Heart rate irregular [Unknown]
  - Bradycardia [Recovered/Resolved]

NARRATIVE: CASE EVENT DATE: 20151016
